FAERS Safety Report 6023647-8 (Version None)
Quarter: 2008Q4

REPORT INFORMATION
  Report Type: 
  Country: None (occurrence: None)
  Receive Date: 20081229
  Receipt Date: 20081229
  Transmission Date: 20090506
  Serious: Yes (Other)
  Sender: FDA-Public Use
  Company Number: None

PATIENT
  Age: 48 Year
  Sex: Female
  Weight: 72.5755 kg

DRUGS (2)
  1. PROVENTIL-HFA [Suspect]
     Indication: ASTHMA
     Dates: start: 20080201, end: 20080601
  2. FLOVENT HFA [Suspect]
     Dates: start: 20080201, end: 20080601

REACTIONS (5)
  - ANXIETY [None]
  - DRUG INEFFECTIVE [None]
  - HEADACHE [None]
  - HEART RATE INCREASED [None]
  - PRODUCT QUALITY ISSUE [None]
